FAERS Safety Report 24021360 (Version 1)
Quarter: 2024Q2

REPORT INFORMATION
  Report Type: Spontaneous
  Country: DE (occurrence: DE)
  Receive Date: 20240627
  Receipt Date: 20240627
  Transmission Date: 20240716
  Serious: No
  Sender: FDA-Public Use
  Company Number: DE-ROCHE-3515984

PATIENT
  Age: 61 Year
  Sex: Female
  Weight: 65.0 kg

DRUGS (4)
  1. COLUMVI [Suspect]
     Active Substance: GLOFITAMAB-GXBM
     Indication: Diffuse large B-cell lymphoma refractory
     Dosage: MOST RECENTLY 30 MG
     Route: 042
     Dates: start: 20230209, end: 20230920
  2. COLUMVI [Suspect]
     Active Substance: GLOFITAMAB-GXBM
     Route: 042
  3. COLUMVI [Suspect]
     Active Substance: GLOFITAMAB-GXBM
     Route: 042
  4. IMMUNOGLOBULINS [Concomitant]
     Route: 058

REACTIONS (1)
  - Hepatitis E [Recovering/Resolving]

NARRATIVE: CASE EVENT DATE: 20230401
